FAERS Safety Report 5164192-1 (Version None)
Quarter: 2006Q4

REPORT INFORMATION
  Report Type: 
  Country: None (occurrence: None)
  Receive Date: 20060918
  Receipt Date: 20051116
  Transmission Date: 20070319
  Serious: Yes (Other)
  Sender: FDA-Public Use
  Company Number: US-JNJFOC-20050805085

PATIENT
  Age: 48 Year
  Sex: Female

DRUGS (1)
  1. TOPAMAX [Suspect]
     Indication: NEURALGIA
     Dosage: 50 MG, 1 IN 1 DAY; ORAL; 25 MG, ORAL
     Route: 048
     Dates: start: 20050601

REACTIONS (2)
  - PROCTALGIA [None]
  - SOMNOLENCE [None]
